FAERS Safety Report 4462598-7 (Version None)
Quarter: 2004Q3

REPORT INFORMATION
  Report Type: 
  Country: None (occurrence: None)
  Receive Date: 20040928
  Receipt Date: 20040915
  Transmission Date: 20050211
  Serious: Yes (Other)
  Sender: FDA-Public Use
  Company Number: 2004233489BR

PATIENT
  Age: 24 Year
  Sex: Female

DRUGS (2)
  1. DEPO-PROVERA [Suspect]
     Indication: CONTRACEPTION
     Dosage: 150 MG/THREE MONTHS, 1ST INJEC., INTRAMUSCULAR; 150 MG/THREE MONTHS, LAST INJ., INTRAMUSCULAR
     Route: 030
     Dates: start: 20040522, end: 20040522
  2. DEPO-PROVERA [Suspect]
     Indication: CONTRACEPTION
     Dosage: 150 MG/THREE MONTHS, 1ST INJEC., INTRAMUSCULAR; 150 MG/THREE MONTHS, LAST INJ., INTRAMUSCULAR
     Route: 030
     Dates: start: 20040822, end: 20040822

REACTIONS (5)
  - BLOOD PRESSURE INCREASED [None]
  - DIZZINESS [None]
  - HEADACHE [None]
  - MALAISE [None]
  - NAUSEA [None]
